FAERS Safety Report 9564912 (Version 1)
Quarter: 2013Q3

REPORT INFORMATION
  Report Type: Report from Study
  Country: DE (occurrence: DE)
  Receive Date: 20130930
  Receipt Date: 20130930
  Transmission Date: 20140515
  Serious: No
  Sender: FDA-Public Use
  Company Number: PHHY2013DE107599

PATIENT
  Sex: Male

DRUGS (15)
  1. AMN107 [Suspect]
     Indication: CHRONIC MYELOID LEUKAEMIA
     Dosage: 600 MG, PER DAY
     Route: 048
     Dates: start: 20110526
  2. AMN107 [Suspect]
     Dosage: 400 MG, PER DAY
     Route: 048
     Dates: start: 20111013, end: 20111108
  3. AMN107 [Suspect]
     Dosage: 600 MG, PER DAY
     Route: 048
     Dates: start: 20111109
  4. SPIRONOLACTON [Concomitant]
     Dosage: 50 MG, UNK
  5. FUROSEMID [Concomitant]
     Dosage: 40 MG, UNK
  6. SYMBICORT [Concomitant]
  7. SIMVASTATIN [Concomitant]
     Dosage: 40 MG, UNK
  8. METOPROLOL [Concomitant]
     Dosage: 50 MG, UNK
  9. TILIDIN [Concomitant]
  10. ALLOPURINOL [Concomitant]
     Dosage: 300 MG, UNK
  11. ASS [Concomitant]
     Dosage: 100 MG, UNK
  12. NOVALGINA [Concomitant]
     Dosage: 500 MG, UNK
  13. PANTOPRAZOL [Concomitant]
     Dosage: 40 MG, UNK
  14. XIPAMID [Concomitant]
     Dosage: 20 MG, UNK
  15. TRIMIPRAMIN AL//TRIMIPRAMINE MALEATE [Concomitant]
     Dosage: 50 MG, UNK

REACTIONS (7)
  - Nausea [Recovered/Resolved]
  - Vomiting [Recovered/Resolved]
  - Diarrhoea [Recovered/Resolved]
  - Abdominal pain [Recovered/Resolved]
  - Dizziness [Recovered/Resolved]
  - Fatigue [Not Recovered/Not Resolved]
  - Haematoma [Recovered/Resolved]
